FAERS Safety Report 26150677 (Version 1)
Quarter: 2025Q4

REPORT INFORMATION
  Report Type: Report from Study
  Country: US (occurrence: US)
  Receive Date: 20251212
  Receipt Date: 20251212
  Transmission Date: 20260117
  Serious: Yes (Other)
  Sender: GILEAD
  Company Number: US-GILEAD-2025-0740551

PATIENT
  Sex: Male

DRUGS (4)
  1. AZTREONAM LYSINE [Suspect]
     Active Substance: AZTREONAM LYSINE
     Indication: Dependence on respirator
     Dosage: INHALE 1 ML (75 MG) INTO LUNGS 3 TIMES A DAY TAKE FOR 28 DAYS ON, 28 DAYS OFF (ALTERNATE WITH INHALE
     Route: 055
  2. AZTREONAM LYSINE [Suspect]
     Active Substance: AZTREONAM LYSINE
     Indication: Respiration abnormal
  3. AZTREONAM LYSINE [Suspect]
     Active Substance: AZTREONAM LYSINE
     Indication: Gastrostomy
  4. AZTREONAM LYSINE [Suspect]
     Active Substance: AZTREONAM LYSINE
     Indication: Tracheostomy

REACTIONS (3)
  - Quadriplegia [Unknown]
  - Neck injury [Unknown]
  - Product use in unapproved indication [Not Recovered/Not Resolved]
